FAERS Safety Report 9393840 (Version 1)
Quarter: 2013Q3

REPORT INFORMATION
  Report Type: Spontaneous
  Country: NZ (occurrence: NZ)
  Receive Date: 20130710
  Receipt Date: 20130710
  Transmission Date: 20140515
  Serious: Yes (Death, Hospitalization)
  Sender: FDA-Public Use
  Company Number: NZ-BAXTER-2013BAX025541

PATIENT
  Age: 50 Year
  Sex: Female

DRUGS (2)
  1. DIANEAL PD-4 PERITONEAL DIALYSIS SOLUTION WITH 2.5% W_V GLUCOSE LOW CA [Suspect]
     Indication: PERITONEAL DIALYSIS
     Route: 033
  2. EXTRANEAL 7.5% W_V ICODEXTRIN PERITONEAL DIALYSIS SOLUTION BAG AHB5546 [Suspect]
     Indication: PERITONEAL DIALYSIS
     Route: 033

REACTIONS (2)
  - Death [Fatal]
  - Malaise [Unknown]
